FAERS Safety Report 5235235-1 (Version None)
Quarter: 2007Q1

REPORT INFORMATION
  Report Type: 
  Country: None (occurrence: None)
  Receive Date: 20070212
  Receipt Date: 20070205
  Transmission Date: 20070707
  Serious: Yes (Death, Hospitalization)
  Sender: FDA-Public Use
  Company Number: US-JNJFOC-20070201751

PATIENT
  Sex: Male

DRUGS (2)
  1. DURAGESIC [Suspect]
     Route: 062
  2. DURAGESIC [Suspect]
     Indication: PAIN
     Route: 062

REACTIONS (2)
  - HOSPITALISATION [None]
  - MULTI-ORGAN FAILURE [None]
